FAERS Safety Report 8955367 (Version 1)
Quarter: 2012Q4

REPORT INFORMATION
  Report Type: Report from Study
  Country: FR (occurrence: FR)
  Receive Date: 20121207
  Receipt Date: 20121207
  Transmission Date: 20130627
  Serious: Yes (Death, Hospitalization)
  Sender: FDA-Public Use
  Company Number: FR-ROCHE-490043

PATIENT
  Age: 48 Year
  Sex: Male

DRUGS (2)
  1. BEVACIZUMAB [Suspect]
     Indication: HEPATIC NEOPLASM MALIGNANT
     Route: 042
     Dates: start: 20070206, end: 20070206
  2. BEVACIZUMAB [Suspect]
     Route: 042
     Dates: start: 20070220, end: 20070220

REACTIONS (3)
  - Death [Fatal]
  - General physical health deterioration [Fatal]
  - General physical health deterioration [Recovered/Resolved]
